FAERS Safety Report 17260441 (Version 1)
Quarter: 2020Q1

REPORT INFORMATION
  Report Type: Spontaneous
  Country: US (occurrence: US)
  Receive Date: 20200112
  Receipt Date: 20200112
  Transmission Date: 20200409
  Serious: Yes (Other)
  Sender: FDA-Public Use
  Company Number: US-ABBVIE-20K-163-3227776-00

PATIENT

DRUGS (1)
  1. ORILISSA [Suspect]
     Active Substance: ELAGOLIX SODIUM
     Indication: ENDOMETRIOSIS
     Route: 048

REACTIONS (11)
  - Internal haemorrhage [Unknown]
  - Adhesion [Unknown]
  - Infertility [Unknown]
  - Endometriosis [Unknown]
  - Fatigue [Unknown]
  - Nausea [Unknown]
  - Insomnia [Unknown]
  - Abortion spontaneous [Unknown]
  - Pain [Unknown]
  - Toxicity to various agents [Unknown]
  - Depression [Unknown]
